FAERS Safety Report 8825534 (Version 2)
Quarter: 2013Q1

REPORT INFORMATION
  Report Type: Spontaneous
  Country: US (occurrence: US)
  Receive Date: 20121004
  Receipt Date: 20130117
  Transmission Date: 20140127
  Serious: Yes (Death)
  Sender: FDA-Public Use
  Company Number: US-GENZYME-FABR-1002771

PATIENT
  Age: 63 Year
  Sex: Female

DRUGS (9)
  1. FABRAZYME [Suspect]
     Indication: FABRY^S DISEASE
     Dosage: 60 MG, Q2W
     Route: 042
     Dates: start: 200708, end: 20120912
  2. ACETAMINOPHEN [Concomitant]
     Indication: PAIN
     Dosage: 325 MG, PRN
     Route: 048
     Dates: start: 20080613, end: 20120811
  3. DEXTROSE [Concomitant]
     Indication: PRODUCT USED FOR UNKNOWN INDICATION
     Dosage: 50 %, PRN
     Route: 042
     Dates: start: 20080613, end: 20120811
  4. DIPHENHYDRAMINE [Concomitant]
     Indication: PRURITUS
     Dosage: 50 MG, PRN
     Route: 042
     Dates: start: 20080613, end: 20120811
  5. ENGERIX [Concomitant]
     Indication: PRODUCT USED FOR UNKNOWN INDICATION
     Dosage: 40 MCG, PRN
     Route: 030
     Dates: start: 20101007
  6. EPINEPHRINE [Concomitant]
     Indication: PRODUCT USED FOR UNKNOWN INDICATION
     Dosage: 30 MG, PRN
     Route: 042
     Dates: start: 20080613, end: 20120811
  7. INFLUENZA VACCINE [Concomitant]
     Indication: PRODUCT USED FOR UNKNOWN INDICATION
     Dosage: .50 ML, UNK
     Route: 030
     Dates: start: 20110906
  8. GLUTOSE [Concomitant]
     Indication: HYPOGLYCAEMIA
     Dosage: 5 UNK, PRN
     Route: 048
     Dates: start: 20080613, end: 20120811
  9. NITROGLYCERIN [Concomitant]
     Indication: CHEST PAIN
     Dosage: .4 MG, PRN
     Route: 060
     Dates: start: 20080613, end: 20080617

REACTIONS (5)
  - Disease progression [Fatal]
  - Renal failure chronic [Fatal]
  - Cardiac failure congestive [Fatal]
  - Cerebrovascular accident [Fatal]
  - Malaise [Fatal]
